FAERS Safety Report 7570387-X (Version None)
Quarter: 2011Q2

REPORT INFORMATION
  Report Type: 
  Country: None (occurrence: None)
  Receive Date: 20110620
  Receipt Date: 20110603
  Transmission Date: 20111010
  Serious: Yes (Hospitalization, Other)
  Sender: FDA-Public Use
  Company Number: 2011MA006730

PATIENT
  Age: 80 Year
  Sex: Female

DRUGS (5)
  1. LEVETIRACETAM [Suspect]
     Indication: CONVULSION
     Dosage: 1000 MG;BID
  2. LEVOTHYROXINE SODIUM [Concomitant]
  3. AMLODIPINE [Concomitant]
  4. SERTRALINE HYDROCHLORIDE [Concomitant]
  5. TELMISARTAN [Concomitant]

REACTIONS (14)
  - DELUSION [None]
  - IMPAIRED SELF-CARE [None]
  - COGNITIVE DISORDER [None]
  - DELIRIUM [None]
  - PARANOIA [None]
  - THYROID FUNCTION TEST ABNORMAL [None]
  - SPEECH DISORDER [None]
  - THINKING ABNORMAL [None]
  - MENTAL STATUS CHANGES [None]
  - CARDIAC FAILURE CONGESTIVE [None]
  - CONFUSIONAL STATE [None]
  - DISTURBANCE IN ATTENTION [None]
  - PSYCHOTIC BEHAVIOUR [None]
  - ATRIAL FIBRILLATION [None]
